FAERS Safety Report 23066283 (Version 1)
Quarter: 2023Q4

REPORT INFORMATION
  Report Type: Spontaneous
  Country: GB (occurrence: GB)
  Receive Date: 20231015
  Receipt Date: 20231015
  Transmission Date: 20240110
  Serious: Yes (Other)
  Sender: FDA-Public Use
  Company Number: GB-TORRENT-00033353

PATIENT
  Sex: Male

DRUGS (1)
  1. SILDENAFIL [Suspect]
     Active Substance: SILDENAFIL
     Indication: Erectile dysfunction
     Dosage: 50 MILLIGRAMHALF OF THE PRESCRIBED DOSE (50 MG) THAT MORNING;
     Route: 065

REACTIONS (9)
  - Blood urine present [Unknown]
  - Cardiomyopathy [Unknown]
  - Dizziness [Unknown]
  - Erythema [Unknown]
  - Flushing [Unknown]
  - Headache [Unknown]
  - Head discomfort [Unknown]
  - Nasal congestion [Unknown]
  - Product substitution issue [Unknown]
